FAERS Safety Report 24685415 (Version 1)
Quarter: 2024Q4

REPORT INFORMATION
  Report Type: Spontaneous
  Country: NL (occurrence: NL)
  Receive Date: 20241202
  Receipt Date: 20241202
  Transmission Date: 20250115
  Serious: Yes (Life-Threatening, Hospitalization)
  Sender: FRESENIUS KABI
  Company Number: None

PATIENT
  Age: 71 Year
  Sex: Female
  Weight: 77 kg

DRUGS (13)
  1. CARBOPLATIN [Suspect]
     Active Substance: CARBOPLATIN
     Indication: Ovarian cancer
     Dosage: 608 MG IV
     Dates: start: 20240913, end: 20241014
  2. METOCLOPRAMIDE [Concomitant]
     Active Substance: METOCLOPRAMIDE
     Indication: Product used for unknown indication
     Dosage: FOA: TABLET
     Route: 048
  3. EDOXABAN TABLET 60MG / Brand name not specified [Concomitant]
     Indication: Product used for unknown indication
  4. FENTANYL PATCH / Brand name not specified [Concomitant]
     Indication: Product used for unknown indication
  5. CHOLECALCIFEROL [Concomitant]
     Active Substance: CHOLECALCIFEROL
     Indication: Product used for unknown indication
  6. ONDANSETRON TABLET 8MG / Brand name not specified [Concomitant]
     Indication: Product used for unknown indication
  7. PANTOPRAZOLE TABLET MSR 40MG / Brand name not specified [Concomitant]
     Indication: Product used for unknown indication
  8. PARACETAMOL TABLET 1000MG / Brand name not specified [Concomitant]
     Indication: Product used for unknown indication
  9. PREGABALIN CAPSULE  75MG / Brand name not specified [Concomitant]
     Indication: Product used for unknown indication
  10. SOTALOL TABLET  40MG / Brand name not specified [Concomitant]
     Indication: Product used for unknown indication
  11. TEMAZEPAM [Concomitant]
     Active Substance: TEMAZEPAM
     Indication: Product used for unknown indication
  12. VASELINE/PARAFFIN CREME 500/500MG/G / Brand name not specified [Concomitant]
     Indication: Product used for unknown indication
  13. VITAMINE B COMPLEX FORTE TABLET / Brand name not specified [Concomitant]
     Indication: Product used for unknown indication

REACTIONS (2)
  - Autoimmune haemolytic anaemia [Recovered/Resolved]
  - Cold type haemolytic anaemia [Recovered/Resolved]

NARRATIVE: CASE EVENT DATE: 20241030
